FAERS Safety Report 16870304 (Version 1)
Quarter: 2019Q3

REPORT INFORMATION
  Report Type: Report from Study
  Country: FR (occurrence: FR)
  Receive Date: 20190930
  Receipt Date: 20190930
  Transmission Date: 20191005
  Serious: Yes (Hospitalization)
  Sender: FDA-Public Use
  Company Number: PHHO2017FR014913

PATIENT
  Age: 71 Year
  Sex: Male
  Weight: 119.1 kg

DRUGS (14)
  1. RAMIPRIL. [Concomitant]
     Active Substance: RAMIPRIL
     Dosage: 5 MG, UNK
     Route: 048
     Dates: start: 20180615
  2. FUROSEMIDE. [Concomitant]
     Active Substance: FUROSEMIDE
     Indication: CARDIAC FAILURE
     Dosage: 500 MG, UNK
     Route: 048
     Dates: start: 20180606
  3. VALSARTAN. [Suspect]
     Active Substance: VALSARTAN
     Indication: CARDIAC FAILURE
     Dosage: 160 MG, BID
     Route: 048
     Dates: start: 20160203, end: 20180207
  4. BISOCE [Concomitant]
     Active Substance: BISOPROLOL
     Indication: PROPHYLAXIS
     Dosage: 2.5 MG, UNK
     Route: 048
     Dates: start: 20171102
  5. APIXABAN [Concomitant]
     Active Substance: APIXABAN
     Indication: ATRIAL FIBRILLATION
     Dosage: 120 MG, UNK
     Route: 048
     Dates: start: 20171026
  6. RAMIPRIL. [Concomitant]
     Active Substance: RAMIPRIL
     Indication: CARDIAC FAILURE
     Dosage: 2.5 MG, UNK
     Route: 048
     Dates: start: 20180606
  7. CORDARONE [Concomitant]
     Active Substance: AMIODARONE HYDROCHLORIDE
     Indication: ATRIAL FIBRILLATION
     Dosage: 200 MG, UNK
     Route: 048
     Dates: start: 20171119
  8. PLACEBO [Suspect]
     Active Substance: UNSPECIFIED INGREDIENT
     Indication: CARDIAC FAILURE
     Dosage: UNK
     Route: 048
     Dates: start: 20160203, end: 20180207
  9. SERETIDE [Concomitant]
     Active Substance: FLUTICASONE PROPIONATE\SALMETEROL XINAFOATE
     Indication: CHRONIC OBSTRUCTIVE PULMONARY DISEASE
     Dosage: 2 U
     Route: 055
     Dates: start: 20150821
  10. SPIRONOLACTONE. [Concomitant]
     Active Substance: SPIRONOLACTONE
     Indication: CARDIAC FAILURE
     Dosage: 12.5 MG, UNK
     Route: 048
     Dates: start: 20180105
  11. BISOPROLOL [Concomitant]
     Active Substance: BISOPROLOL
     Indication: CARDIAC FAILURE
     Dosage: 5 MG, UNK
     Route: 048
     Dates: start: 20171026
  12. ELIQUIS [Concomitant]
     Active Substance: APIXABAN
     Indication: CARDIAC FAILURE
     Dosage: 5 MG, UNK
     Route: 048
     Dates: start: 20171026
  13. INSULINE [Concomitant]
     Active Substance: INSULIN NOS
     Indication: DIABETES MELLITUS
     Dosage: 70 U
     Route: 058
     Dates: start: 200901
  14. SPIRONOLACTONE. [Concomitant]
     Active Substance: SPIRONOLACTONE
     Dosage: 25 MG, UNK
     Route: 048
     Dates: start: 20180920

REACTIONS (6)
  - Cardiac failure [Recovered/Resolved]
  - Cardiac failure [Recovered/Resolved]
  - Cardiac failure [Recovered/Resolved]
  - Cardiac failure [Recovered/Resolved]
  - Cardiac failure [Recovered/Resolved]
  - Cardiac failure [Recovered/Resolved]

NARRATIVE: CASE EVENT DATE: 20171026
